FAERS Safety Report 7448565-X (Version None)
Quarter: 2011Q2

REPORT INFORMATION
  Report Type: 
  Country: None (occurrence: None)
  Receive Date: 20110429
  Receipt Date: 20100622
  Transmission Date: 20111010
  Serious: Yes (Hospitalization)
  Sender: FDA-Public Use
  Company Number: US-ASTRAZENECA-2010SE23404

PATIENT
  Age: 639 Month
  Sex: Female
  Weight: 82.7 kg

DRUGS (7)
  1. PREDNISONE [Concomitant]
     Route: 048
  2. ZOCOR [Concomitant]
  3. SENNA [Concomitant]
  4. LORTAB [Concomitant]
  5. NEXIUM [Suspect]
     Route: 048
     Dates: start: 20090925
  6. ZANTAC [Concomitant]
  7. CHLORHEXIDINE TOPICAL, 0.12 % MOUTHWASH [Concomitant]
     Route: 061

REACTIONS (1)
  - ANAPHYLACTIC REACTION [None]
